FAERS Safety Report 4380525-8 (Version None)
Quarter: 2004Q2

REPORT INFORMATION
  Report Type: 
  Country: None (occurrence: None)
  Receive Date: 20040614
  Receipt Date: 20040325
  Transmission Date: 20050107
  Serious: Yes (Hospitalization)
  Sender: FDA-Public Use
  Company Number: M04-341-105

PATIENT
  Age: 50 Year
  Sex: Male
  Weight: 67 kg

DRUGS (5)
  1. VELCADE [Suspect]
     Indication: MANTLE CELL LYMPHOMA
     Dosage: 2.3 MG BIW: INTRAVENOUS BOLUS
     Route: 040
     Dates: end: 20040304
  2. FUROSEMIDE [Concomitant]
  3. IRON [Concomitant]
  4. OXYCODONE [Concomitant]
  5. SUCRALFATE [Concomitant]

REACTIONS (3)
  - ABDOMINAL PAIN [None]
  - SPLENECTOMY [None]
  - SPLENOMEGALY [None]
